FAERS Safety Report 25704177 (Version 1)
Quarter: 2025Q3

REPORT INFORMATION
  Report Type: Spontaneous
  Country: CN (occurrence: CN)
  Receive Date: 20250820
  Receipt Date: 20250820
  Transmission Date: 20251020
  Serious: Yes (Other)
  Sender: BAXTER
  Company Number: None

PATIENT
  Age: 53 Year
  Sex: Female
  Weight: 58 kg

DRUGS (4)
  1. CYCLOPHOSPHAMIDE [Suspect]
     Active Substance: CYCLOPHOSPHAMIDE
     Indication: Breast cancer female
     Dosage: 0.8 G, QD
     Route: 041
     Dates: start: 20250730, end: 20250730
  2. SODIUM CHLORIDE [Suspect]
     Active Substance: SODIUM CHLORIDE
     Dosage: 100 ML, QD, 0.9% NS WITH CYCLOPHOSPHAMIDE
     Route: 041
     Dates: start: 20250730, end: 20250730
  3. SODIUM CHLORIDE [Suspect]
     Active Substance: SODIUM CHLORIDE
     Dosage: 100 ML, QD, 0.9% NS WITH PACLITAXEL
     Route: 041
     Dates: start: 20250730, end: 20250730
  4. PACLITAXEL [Suspect]
     Active Substance: PACLITAXEL
     Indication: Breast cancer female
     Dosage: 0.19 G, QD
     Route: 041
     Dates: start: 20250730, end: 20250730

REACTIONS (1)
  - Nausea [Recovered/Resolved]

NARRATIVE: CASE EVENT DATE: 20250731
